FAERS Safety Report 20861996 (Version 2)
Quarter: 2022Q3

REPORT INFORMATION
  Report Type: Report from Study
  Country: JP (occurrence: JP)
  Receive Date: 20220523
  Receipt Date: 20220711
  Transmission Date: 20221027
  Serious: Yes (Other)
  Sender: FDA-Public Use
  Company Number: JP-TAKEDA-2022TJP048621

PATIENT

DRUGS (1)
  1. NIRAPARIB [Suspect]
     Active Substance: NIRAPARIB
     Indication: Ovarian cancer
     Dosage: 200 MG
     Route: 048

REACTIONS (7)
  - Ovarian cancer [Unknown]
  - Condition aggravated [Unknown]
  - Nausea [Unknown]
  - Hypertension [Unknown]
  - Anaemia [Unknown]
  - Platelet count decreased [Unknown]
  - Malaise [Unknown]
